FAERS Safety Report 23109416 (Version 1)
Quarter: 2023Q4

REPORT INFORMATION
  Report Type: Spontaneous
  Country: US (occurrence: None)
  Receive Date: 20231026
  Receipt Date: 20231026
  Transmission Date: 20240110
  Serious: No
  Sender: FDA-Public Use
  Company Number: 2023A242775

PATIENT
  Age: 27259 Day
  Sex: Male

DRUGS (1)
  1. BREZTRI [Suspect]
     Active Substance: BUDESONIDE\FORMOTEROL\GLYCOPYRROLATE
     Indication: Asthma
     Dosage: 2 PUFFS
     Route: 055
     Dates: start: 20220110, end: 20230921

REACTIONS (4)
  - Hypersensitivity [Unknown]
  - Dysphonia [Recovering/Resolving]
  - Aphonia [Unknown]
  - Asthma [Unknown]

NARRATIVE: CASE EVENT DATE: 20220110
